FAERS Safety Report 4904216-7 (Version None)
Quarter: 2006Q1

REPORT INFORMATION
  Report Type: 
  Country: None (occurrence: None)
  Receive Date: 20060208
  Receipt Date: 20050809
  Transmission Date: 20060701
  Serious: No
  Sender: FDA-Public Use
  Company Number: US-GLAXOSMITHKLINE-A0569765A

PATIENT
  Age: 38 Year
  Sex: Male
  Weight: 102.3 kg

DRUGS (1)
  1. PAXIL [Suspect]
     Route: 048
     Dates: start: 20050601

REACTIONS (1)
  - DRUG INEFFECTIVE [None]
